FAERS Safety Report 9188843 (Version 1)
Quarter: 2013Q1

REPORT INFORMATION
  Report Type: Spontaneous
  Country: FR (occurrence: FR)
  Receive Date: 20130326
  Receipt Date: 20130326
  Transmission Date: 20140127
  Serious: Yes (Life-Threatening, Hospitalization)
  Sender: FDA-Public Use
  Company Number: FR-PFIZER INC-2013092534

PATIENT
  Age: 62 Year
  Sex: Male

DRUGS (5)
  1. REVATIO [Suspect]
     Indication: PULMONARY HYPERTENSION
     Dosage: 20 MG, 3X/DAY
     Route: 048
     Dates: start: 20071112
  2. CORTANCYL [Suspect]
     Route: 048
  3. PREVISCAN [Suspect]
     Dosage: 20 MG
     Route: 048
  4. INEXIUM [Suspect]
     Route: 048
  5. DIFFU K [Suspect]
     Route: 048

REACTIONS (1)
  - Congestive cardiomyopathy [Not Recovered/Not Resolved]
